FAERS Safety Report 21789669 (Version 3)
Quarter: 2025Q3

REPORT INFORMATION
  Report Type: Report from Study
  Country: GB (occurrence: GB)
  Receive Date: 20221228
  Receipt Date: 20250710
  Transmission Date: 20251020
  Serious: Yes (Hospitalization, Other)
  Sender: JAZZ
  Company Number: GB-GW PHARMA-2022-GB-035922

PATIENT
  Sex: Female

DRUGS (1)
  1. EPIDIOLEX [Suspect]
     Active Substance: CANNABIDIOL
     Indication: Seizure

REACTIONS (6)
  - Lower respiratory tract infection [Unknown]
  - Pancreatic pseudocyst [Unknown]
  - Pancreatitis acute [Unknown]
  - Pneumonia [Unknown]
  - Pyrexia [Unknown]
  - Aspiration [Unknown]

NARRATIVE: CASE EVENT DATE: 20220301
